FAERS Safety Report 19441079 (Version 3)
Quarter: 2021Q2

REPORT INFORMATION
  Report Type: Spontaneous
  Country: NL (occurrence: NL)
  Receive Date: 20210621
  Receipt Date: 20210626
  Transmission Date: 20210717
  Serious: Yes (Death, Life-Threatening, Hospitalization)
  Sender: FDA-Public Use
  Company Number: NL-TEVA-2021-NL-1923336

PATIENT
  Age: 68 Year
  Sex: Female
  Weight: 60 kg

DRUGS (3)
  1. UMECLIDINIUM/VILANTEROL INHPDR 55/22UG/DO / ANORO ELLIPTA INHPDR 55/22 [Concomitant]
     Dosage: 55/22 G/DOSE,THERAPY START DATE ASKU, THERAPY END DATE ASKU
  2. OMEPRAZOL CAPSULE MSR 20MG / BRAND NAME NOT SPECIFIED [Concomitant]
     Active Substance: OMEPRAZOLE
     Dosage: 20 MG ,THERAPY START DATE ASKU, THERAPY END DATE ASKU
  3. NITROFURANTOINE CAPSULE   50MG / BRAND NAME NOT SPECIFIED [Suspect]
     Active Substance: NITROFURANTOIN
     Indication: PROPHYLAXIS URINARY TRACT INFECTION
     Dosage: 50 MILLIGRAM DAILY; THERAPY END DATE ASKU????????FOR THE NIGHT 1 CAPSULE
     Dates: start: 201609

REACTIONS (3)
  - Diffuse alveolar damage [Fatal]
  - Renal injury [Fatal]
  - Hepatic cirrhosis [Fatal]

NARRATIVE: CASE EVENT DATE: 20210115
